FAERS Safety Report 13358630 (Version 4)
Quarter: 2017Q2

REPORT INFORMATION
  Report Type: Spontaneous
  Country: US (occurrence: US)
  Receive Date: 20170322
  Receipt Date: 20170511
  Transmission Date: 20170830
  Serious: Yes (Death, Life-Threatening, Other)
  Sender: FDA-Public Use
  Company Number: US-009507513-1703USA007366

PATIENT
  Age: 56 Year
  Sex: Male

DRUGS (1)
  1. BELSOMRA [Suspect]
     Active Substance: SUVOREXANT
     Indication: INSOMNIA
     Dosage: DOSE FREQUENCY: 1 TABLET BY MOUTH EVERY NIGHT AT BEDTIME
     Route: 048
     Dates: start: 201605

REACTIONS (6)
  - Aggression [Unknown]
  - Drug dose omission [Unknown]
  - Completed suicide [Fatal]
  - Emotional disorder [Unknown]
  - Drug dose omission [Unknown]
  - Personality change [Unknown]

NARRATIVE: CASE EVENT DATE: 2016
